FAERS Safety Report 9063770 (Version 1)
Quarter: 2013Q1

REPORT INFORMATION
  Report Type: Spontaneous
  Country: US (occurrence: US)
  Receive Date: 20130131
  Receipt Date: 20130131
  Transmission Date: 20140127
  Serious: Yes (Death, Life-Threatening, Hospitalization, Other)
  Sender: FDA-Public Use
  Company Number: US-RB-044122-12

PATIENT
  Age: 31 Year
  Sex: Male

DRUGS (5)
  1. SUBOXONE TABLET [Suspect]
     Indication: PRODUCT USED FOR UNKNOWN INDICATION
     Dosage: DOSING DETAILS UNKNOWN-REPORTEDLY TOOK 39 SUBOXONE TABLETS
     Route: 065
     Dates: end: 201207
  2. ATYPICAL ANTIPSYCHOTICS [Suspect]
     Indication: PRODUCT USED FOR UNKNOWN INDICATION
     Dosage: DOSING DETAILS UNKNOWN
     Route: 065
     Dates: end: 201207
  3. HEROIN [Suspect]
     Indication: PRODUCT USED FOR UNKNOWN INDICATION
     Dates: end: 20120725
  4. HEROIN [Suspect]
     Indication: PRODUCT USED FOR UNKNOWN INDICATION
     Dates: end: 20120725
  5. UNKNOWN OPIOID [Suspect]
     Indication: PRODUCT USED FOR UNKNOWN INDICATION
     Dosage: DOSING INFORMATION UNKNOWN
     Dates: end: 20120725

REACTIONS (13)
  - Completed suicide [Fatal]
  - Intentional overdose [Fatal]
  - Cardiac arrest [Unknown]
  - Respiratory arrest [Unknown]
  - Drug abuse [Fatal]
  - Acidosis [Unknown]
  - Vertigo [Unknown]
  - Hypertension [Unknown]
  - Miosis [Unknown]
  - Sinus tachycardia [Unknown]
  - Overdose [Fatal]
  - Brain oedema [Fatal]
  - Gastrointestinal sounds abnormal [Unknown]
